FAERS Safety Report 11604764 (Version 1)
Quarter: 2015Q4

REPORT INFORMATION
  Report Type: Spontaneous
  Country: DE (occurrence: DE)
  Receive Date: 20151007
  Receipt Date: 20151007
  Transmission Date: 20160304
  Serious: Yes (Death, Other)
  Sender: FDA-Public Use
  Company Number: DE-CELGENE-DEU-2015086414

PATIENT
  Age: 55 Year
  Sex: Female

DRUGS (1)
  1. ABRAXANE [Suspect]
     Active Substance: PACLITAXEL
     Indication: BREAST CANCER
     Route: 065
     Dates: start: 201404

REACTIONS (2)
  - Death [Fatal]
  - Hepatic cirrhosis [Unknown]

NARRATIVE: CASE EVENT DATE: 201411
